FAERS Safety Report 14903965 (Version 1)
Quarter: 2018Q2

REPORT INFORMATION
  Report Type: Spontaneous
  Country: US (occurrence: US)
  Receive Date: 20180516
  Receipt Date: 20180516
  Transmission Date: 20180711
  Serious: No
  Sender: FDA-Public Use
  Company Number: US-COLLEGIUM PHARMACEUTICAL, INC.-2018CGM00086

PATIENT
  Sex: Female

DRUGS (3)
  1. PERCOCET [Suspect]
     Active Substance: ACETAMINOPHEN\OXYCODONE HYDROCHLORIDE
     Dosage: 2 DOSAGE UNITS, ONCE
  2. PERCOCET [Suspect]
     Active Substance: ACETAMINOPHEN\OXYCODONE HYDROCHLORIDE
     Indication: PAIN
     Dosage: UNK, EVERY FEW HOURS AS NEEDED
  3. XTAMPZA ER [Suspect]
     Active Substance: OXYCODONE
     Indication: PAIN
     Dosage: 36 MG, 2X/DAY (EVERY 12 HOURS)

REACTIONS (8)
  - Inappropriate schedule of drug administration [Unknown]
  - Pain [Recovering/Resolving]
  - Muscle spasms [Recovering/Resolving]
  - Agitation [Recovered/Resolved]
  - Insomnia [Unknown]
  - Drug effect incomplete [Recovered/Resolved]
  - Gait disturbance [Recovering/Resolving]
  - Frustration tolerance decreased [Recovered/Resolved]
